FAERS Safety Report 18492321 (Version 4)
Quarter: 2021Q1

REPORT INFORMATION
  Report Type: Spontaneous
  Country: BR (occurrence: BR)
  Receive Date: 20201111
  Receipt Date: 20210108
  Transmission Date: 20210419
  Serious: Yes (Other)
  Sender: FDA-Public Use
  Company Number: BR-SA-2020SA309429

PATIENT

DRUGS (11)
  1. FOLIC ACID. [Concomitant]
     Active Substance: FOLIC ACID
     Indication: ANAEMIA
     Dosage: 1 DF, QD
     Route: 048
     Dates: start: 2000
  2. CITONEURIN [CYANOCOBALAMIN;PYRIDOXINE HYDROCHLORIDE;THIAMINE HYDROCHLO [Concomitant]
     Indication: NEUROPATHY PERIPHERAL
     Dosage: 1 AMPOULE , Q15D
     Route: 065
     Dates: start: 2000
  3. LANTUS [Suspect]
     Active Substance: INSULIN GLARGINE
     Indication: DIABETES MELLITUS MANAGEMENT
     Dosage: 14 IU, QD (IN THE MORNING)
     Route: 058
     Dates: start: 2005
  4. LANTUS [Suspect]
     Active Substance: INSULIN GLARGINE
     Dosage: PARTIAL DOSE
     Route: 058
  5. OMEGA 3 [FISH OIL] [Concomitant]
     Active Substance: FISH OIL
     Indication: COLLAGEN DISORDER
  6. GLIFAGE [Concomitant]
     Active Substance: METFORMIN HYDROCHLORIDE
     Indication: DIABETES MELLITUS
     Dosage: 3 DF, QD
     Route: 048
     Dates: start: 2000
  7. APIDRA [Suspect]
     Active Substance: INSULIN GLULISINE
     Indication: DIABETES MELLITUS MANAGEMENT
     Dosage: 4 IU, TID (AFTER MORNING,LUNCH AND DINNER)
     Route: 058
     Dates: start: 2005
  8. LOSARTAN. [Concomitant]
     Active Substance: LOSARTAN
     Indication: BLOOD PRESSURE INCREASED
     Dosage: 50 MG, QD
     Route: 048
     Dates: start: 2010
  9. OMEGA 3 [FISH OIL] [Concomitant]
     Active Substance: FISH OIL
     Indication: MEMORY IMPAIRMENT
     Dosage: 1 DF, QD
     Route: 048
     Dates: start: 2000
  10. VITAMIN D [VITAMIN D NOS] [Concomitant]
     Active Substance: VITAMIN D NOS
     Dosage: UNK UNK, QW
     Route: 048
     Dates: start: 2020
  11. APIDRA [Suspect]
     Active Substance: INSULIN GLULISINE
     Dosage: PARTIAL DOSE
     Route: 058

REACTIONS (6)
  - Diabetic metabolic decompensation [Not Recovered/Not Resolved]
  - Incorrect dose administered by device [Not Recovered/Not Resolved]
  - Device leakage [Not Recovered/Not Resolved]
  - Multiple use of single-use product [Unknown]
  - Product storage error [Unknown]
  - Product odour abnormal [Not Recovered/Not Resolved]

NARRATIVE: CASE EVENT DATE: 2019
